FAERS Safety Report 14587465 (Version 2)
Quarter: 2018Q2

REPORT INFORMATION
  Report Type: Spontaneous
  Country: DK (occurrence: DK)
  Receive Date: 20180301
  Receipt Date: 20180527
  Transmission Date: 20180711
  Serious: Yes (Disabling)
  Sender: FDA-Public Use
  Company Number: PHHY2018DK031900

PATIENT
  Sex: Female

DRUGS (1)
  1. TEGRETOL [Suspect]
     Active Substance: CARBAMAZEPINE
     Indication: EPILEPSY
     Dosage: 400 MG, Q12H
     Route: 048

REACTIONS (9)
  - Hypokinesia [Recovered/Resolved]
  - Sleep disorder [Recovered/Resolved]
  - Gastrointestinal disorder [Recovered/Resolved]
  - Diplopia [Recovered/Resolved]
  - Dizziness [Recovered/Resolved]
  - Overdose [Recovered/Resolved]
  - Monoplegia [Recovering/Resolving]
  - Overweight [Not Recovered/Not Resolved]
  - Angina pectoris [Recovered/Resolved]
